FAERS Safety Report 19644937 (Version 1)
Quarter: 2021Q3

REPORT INFORMATION
  Report Type: Spontaneous
  Country: US (occurrence: US)
  Receive Date: 20210802
  Receipt Date: 20210802
  Transmission Date: 20211014
  Serious: Yes (Other)
  Sender: FDA-Public Use
  Company Number: US-HIKMA PHARMACEUTICALS USA INC.-US-H14001-21-03428

PATIENT
  Age: 48 Year
  Sex: Male
  Weight: 92.99 kg

DRUGS (7)
  1. XELJANZ [Concomitant]
     Active Substance: TOFACITINIB CITRATE
     Indication: ALOPECIA
     Dosage: UNKNOWN
     Route: 048
     Dates: start: 201808
  2. XELJANZ [Concomitant]
     Active Substance: TOFACITINIB CITRATE
     Route: 048
     Dates: start: 201908
  3. XELJANZ [Concomitant]
     Active Substance: TOFACITINIB CITRATE
     Indication: VITILIGO
     Route: 048
     Dates: start: 201811
  4. XELJANZ [Concomitant]
     Active Substance: TOFACITINIB CITRATE
     Route: 048
     Dates: start: 201905
  5. METHOTREXATE. [Suspect]
     Active Substance: METHOTREXATE
     Indication: PRODUCT USED FOR UNKNOWN INDICATION
     Dosage: UNKNOWN
     Route: 048
  6. METHOTREXATE. [Suspect]
     Active Substance: METHOTREXATE
     Route: 048
  7. PREDNISONE. [Suspect]
     Active Substance: PREDNISONE
     Indication: PRODUCT USED FOR UNKNOWN INDICATION
     Dosage: UNKNOWN
     Route: 065
     Dates: start: 202003

REACTIONS (4)
  - Ankylosing spondylitis [Unknown]
  - Autoimmune disorder [Unknown]
  - Iridocyclitis [Unknown]
  - Eye disorder [Unknown]

NARRATIVE: CASE EVENT DATE: 202003
